FAERS Safety Report 6697205-6 (Version None)
Quarter: 2010Q2

REPORT INFORMATION
  Report Type: 
  Country: None (occurrence: None)
  Receive Date: 20100426
  Receipt Date: 20100416
  Transmission Date: 20101027
  Serious: Yes (Other)
  Sender: FDA-Public Use
  Company Number: US-PFIZER INC-2006102232

PATIENT
  Sex: Female
  Weight: 50 kg

DRUGS (17)
  1. PROVERA [Suspect]
     Indication: HORMONE REPLACEMENT THERAPY
     Dosage: 5 MG, UNK
     Route: 048
     Dates: start: 19940701, end: 19971201
  2. PROVERA [Suspect]
     Dosage: 2.5 MG, UNK
     Dates: start: 19960401, end: 19970901
  3. MEDROXYPROGESTERONE ACETATE [Suspect]
     Indication: HORMONE REPLACEMENT THERAPY
     Dosage: 5 MG, UNK
     Route: 048
     Dates: start: 19940701, end: 19971201
  4. MEDROXYPROGESTERONE ACETATE [Suspect]
     Dosage: 2.5 MG, UNK
     Route: 048
     Dates: start: 19960401, end: 19970901
  5. MEDROXYPROGESTERONE [Suspect]
     Indication: HORMONE REPLACEMENT THERAPY
     Dosage: 5 MG, UNK
     Dates: start: 19980101, end: 20021101
  6. PREMARIN [Suspect]
     Indication: HORMONE REPLACEMENT THERAPY
     Dosage: 0.625 MG, UNK
     Route: 065
     Dates: start: 19940701, end: 19960901
  7. ESTRACE [Suspect]
     Indication: HORMONE REPLACEMENT THERAPY
     Dosage: 1 MG, UNK
     Dates: start: 19960401, end: 19971201
  8. ESTRADIOL [Suspect]
     Indication: HORMONE REPLACEMENT THERAPY
     Dosage: 1 MG, UNK
     Dates: start: 19980101, end: 20020101
  9. ESTRADIOL [Suspect]
     Dosage: 1 MG, UNK
     Dates: start: 19980101, end: 20020101
  10. PAXIL [Concomitant]
     Indication: DEPRESSION
     Dosage: UNK
     Dates: start: 19980101
  11. PAXIL [Concomitant]
     Indication: ANXIETY
  12. LEXAPRO [Concomitant]
     Indication: DEPRESSION
     Dosage: UNK
     Dates: start: 19980101
  13. LEXAPRO [Concomitant]
     Indication: ANXIETY
  14. WELLBUTRIN [Concomitant]
     Indication: DEPRESSION
     Dosage: UNK
     Dates: start: 19980101
  15. WELLBUTRIN [Concomitant]
     Indication: ANXIETY
  16. CELEXA [Concomitant]
     Indication: DEPRESSION
     Dosage: UNK
     Dates: start: 19980101
  17. CELEXA [Concomitant]
     Indication: ANXIETY

REACTIONS (1)
  - BREAST CANCER [None]
